FAERS Safety Report 8363319-8 (Version None)
Quarter: 2012Q2

REPORT INFORMATION
  Report Type: 
  Country: None (occurrence: None)
  Receive Date: 20120516
  Receipt Date: 20120515
  Transmission Date: 20120825
  Serious: No
  Sender: FDA-Public Use
  Company Number: US-PFIZER INC-2012118285

PATIENT
  Sex: Male

DRUGS (1)
  1. LYRICA [Suspect]
     Dosage: 75 MG, 2X/DAY
     Dates: start: 20120515

REACTIONS (4)
  - DIZZINESS [None]
  - FEELING DRUNK [None]
  - EUPHORIC MOOD [None]
  - FEELING ABNORMAL [None]
